FAERS Safety Report 14454395 (Version 1)
Quarter: 2018Q1

REPORT INFORMATION
  Report Type: Spontaneous
  Country: US (occurrence: US)
  Receive Date: 20180128
  Receipt Date: 20180128
  Transmission Date: 20180509
  Serious: Yes (Disabling)
  Sender: FDA-Public Use
  Company Number: None

PATIENT
  Age: 17 Year
  Sex: Male
  Weight: 81 kg

DRUGS (1)
  1. METHYLPHENIDATE ER 54MG [Suspect]
     Active Substance: METHYLPHENIDATE
     Indication: ATTENTION DEFICIT/HYPERACTIVITY DISORDER
     Dosage: ?          QUANTITY:1 TABLET(S);?
     Route: 048
     Dates: start: 20180105, end: 20180125

REACTIONS (10)
  - Impaired self-care [None]
  - Disturbance in attention [None]
  - Middle insomnia [None]
  - Drug ineffective [None]
  - Irritability [None]
  - Depressed mood [None]
  - Product substitution issue [None]
  - Memory impairment [None]
  - Aggression [None]
  - Depression [None]

NARRATIVE: CASE EVENT DATE: 20180105
